FAERS Safety Report 22602825 (Version 4)
Quarter: 2023Q4

REPORT INFORMATION
  Report Type: Spontaneous
  Country: FR (occurrence: FR)
  Receive Date: 20230615
  Receipt Date: 20231206
  Transmission Date: 20240109
  Serious: Yes (Congenital Anomaly)
  Sender: FDA-Public Use
  Company Number: None

PATIENT

DRUGS (2)
  1. STELARA [Suspect]
     Active Substance: USTEKINUMAB
     Indication: Crohn^s disease
     Dosage: 90 UG/8 SEMAINES
     Route: 064
     Dates: start: 202301
  2. STELARA [Suspect]
     Active Substance: USTEKINUMAB
     Route: 064
     Dates: start: 20181218

REACTIONS (4)
  - Congenital pulmonary airway malformation [Not Recovered/Not Resolved]
  - Congenital pulmonary airway malformation [Not Recovered/Not Resolved]
  - Maternal exposure during pregnancy [Not Recovered/Not Resolved]
  - Congenital pulmonary airway malformation [Not Recovered/Not Resolved]

NARRATIVE: CASE EVENT DATE: 20230415
